FAERS Safety Report 4966027-6 (Version None)
Quarter: 2006Q2

REPORT INFORMATION
  Report Type: 
  Country: None (occurrence: None)
  Receive Date: 20060407
  Receipt Date: 20060329
  Transmission Date: 20061013
  Serious: Yes (Hospitalization)
  Sender: FDA-Public Use
  Company Number: JP-JPN-A200601084

PATIENT
  Sex: Male
  Weight: 83 kg

DRUGS (10)
  1. ALBUTEROL [Suspect]
     Indication: CHRONIC OBSTRUCTIVE PULMONARY DISEASE
     Route: 055
     Dates: start: 20060201
  2. APTA-2217 [Suspect]
     Indication: CHRONIC OBSTRUCTIVE PULMONARY DISEASE
     Dosage: 250MCG PER DAY
     Route: 048
     Dates: start: 20060228, end: 20060323
  3. BLOPRESS [Concomitant]
     Indication: HYPERTENSION
     Route: 048
  4. AMLODIN [Concomitant]
     Indication: HYPERTENSION
     Route: 048
  5. MARZULENE S [Concomitant]
     Route: 048
  6. CIBENOL [Concomitant]
     Indication: ARRHYTHMIA
  7. GASCON [Concomitant]
     Route: 048
  8. ZANTAC [Concomitant]
  9. ACTOS [Concomitant]
     Indication: DIABETES MELLITUS NON-INSULIN-DEPENDENT
     Route: 048
  10. MAGNESIUM OXIDE [Concomitant]
     Indication: CONSTIPATION
     Route: 048

REACTIONS (2)
  - DECREASED APPETITE [None]
  - WEIGHT DECREASED [None]
